FAERS Safety Report 7712245-3 (Version None)
Quarter: 2011Q3

REPORT INFORMATION
  Report Type: 
  Country: None (occurrence: None)
  Receive Date: 20110826
  Receipt Date: 20110817
  Transmission Date: 20111222
  Serious: Yes (Hospitalization)
  Sender: FDA-Public Use
  Company Number: DE-CELGENEUS-062-21880-11072657

PATIENT
  Age: 56 Year
  Sex: Male

DRUGS (8)
  1. ADRIAMYCIN PFS [Suspect]
     Indication: MULTIPLE MYELOMA
     Route: 065
  2. COTRIM DS [Concomitant]
     Indication: INFECTION
     Route: 048
  3. LYRICA [Concomitant]
     Indication: PAIN
     Dosage: 10 MILLIGRAM
     Route: 048
  4. RAMIPRIL [Concomitant]
     Indication: HYPERTENSION
     Dosage: 2.5 MILLIGRAM
     Route: 048
  5. MORPHINE SULFATE [Concomitant]
     Indication: PAIN
     Dosage: 80 MILLIGRAM
     Route: 048
  6. MELPHALAN [Concomitant]
     Indication: MULTIPLE MYELOMA
     Route: 065
  7. DEXAMETHASONE [Suspect]
     Indication: MULTIPLE MYELOMA
     Route: 065
  8. REVLIMID [Suspect]
     Indication: MULTIPLE MYELOMA
     Route: 048

REACTIONS (2)
  - BRONCHIAL CARCINOMA [None]
  - PNEUMONIA FUNGAL [None]
